FAERS Safety Report 21363373 (Version 4)
Quarter: 2022Q4

REPORT INFORMATION
  Report Type: Report from Study
  Country: US (occurrence: US)
  Receive Date: 20220922
  Receipt Date: 20221227
  Transmission Date: 20230112
  Serious: No
  Sender: FDA-Public Use
  Company Number: US-BIOVITRUM-2022US10685

PATIENT
  Sex: Female

DRUGS (2)
  1. DOPTELET [Suspect]
     Active Substance: AVATROMBOPAG MALEATE
     Indication: Immune thrombocytopenia
     Dates: start: 20220827
  2. TAVALISSE [Concomitant]
     Active Substance: FOSTAMATINIB
     Dosage: TABLET

REACTIONS (3)
  - Platelet count decreased [Recovering/Resolving]
  - Therapeutic product effect decreased [Unknown]
  - Product dose omission issue [Unknown]
